FAERS Safety Report 16108609 (Version 4)
Quarter: 2019Q3

REPORT INFORMATION
  Report Type: Spontaneous
  Country: IT (occurrence: IT)
  Receive Date: 20190323
  Receipt Date: 20190704
  Transmission Date: 20191004
  Serious: Yes (Other)
  Sender: FDA-Public Use
  Company Number: IT-ACCORD-113734

PATIENT
  Age: 69 Year
  Sex: Female
  Weight: 56 kg

DRUGS (4)
  1. OXALIPLATIN. [Suspect]
     Active Substance: OXALIPLATIN
     Indication: ADENOCARCINOMA GASTRIC
     Dosage: ALSO RECEIVED 1304 MG FROM 26-FEB-18 TO 27-AUG-18.DRUG LAST ADMINISTERED:27-AUG-2018
     Route: 042
     Dates: start: 20180226
  2. LEVOLEUCOVORIN. [Concomitant]
     Active Substance: LEVOLEUCOVORIN
     Indication: ADENOCARCINOMA GASTRIC
     Route: 042
     Dates: start: 20180226, end: 20181001
  3. FLUOROURACIL. [Suspect]
     Active Substance: FLUOROURACIL
     Indication: ADENOCARCINOMA GASTRIC
     Dosage: INTRAVENOUS (NOT OTHERWISE SPECIFIED) 3768 MG FROM 26-FEB-2018 TO 01-OCT-2018.
     Route: 040
     Dates: start: 20180226
  4. HERCEPTIN [Suspect]
     Active Substance: TRASTUZUMAB
     Indication: ADENOCARCINOMA GASTRIC
     Dosage: DRUG LAST ADMINISTERED : 01-OCT-2018
     Route: 042
     Dates: start: 20180226

REACTIONS (13)
  - Neutropenia [Recovering/Resolving]
  - Constipation [Recovering/Resolving]
  - Asthenia [Recovering/Resolving]
  - Stomatitis [Recovering/Resolving]
  - Dysgeusia [Recovering/Resolving]
  - Aphthous ulcer [Recovering/Resolving]
  - Arrhythmia [Recovering/Resolving]
  - Diarrhoea [Recovered/Resolved]
  - Pyrexia [Recovering/Resolving]
  - Dry mouth [Recovering/Resolving]
  - Nausea [Recovering/Resolving]
  - Extrasystoles [Recovering/Resolving]
  - Thrombocytopenia [Recovering/Resolving]

NARRATIVE: CASE EVENT DATE: 20180303
